FAERS Safety Report 16190745 (Version 2)
Quarter: 2019Q2

REPORT INFORMATION
  Report Type: Spontaneous
  Country: US (occurrence: US)
  Receive Date: 20190412
  Receipt Date: 20190426
  Transmission Date: 20190711
  Serious: Yes (Hospitalization, Other)
  Sender: FDA-Public Use
  Company Number: US-NAPPMUNDI-USA-2019-0146821

PATIENT
  Age: 27 Year
  Sex: Female

DRUGS (3)
  1. OXYCODONE HYDROCHLORIDE (SIMILAR TO NDA 22-272) [Suspect]
     Active Substance: OXYCODONE HYDROCHLORIDE
     Indication: CARPAL TUNNEL SYNDROME
     Dosage: 15 MG, BID
     Route: 048
  2. OXYCODONE HYDROCHLORIDE (SIMILAR TO NDA 22-272) [Suspect]
     Active Substance: OXYCODONE HYDROCHLORIDE
     Dosage: 60 MG, UNK
     Route: 048
  3. OXYCODONE HYDROCHLORIDE (SIMILAR TO NDA 22-272) [Suspect]
     Active Substance: OXYCODONE HYDROCHLORIDE
     Dosage: 60 MG, UNK

REACTIONS (7)
  - Sinus tachycardia [Recovered/Resolved]
  - Intentional product misuse [Recovered/Resolved]
  - Hypotension [Recovered/Resolved]
  - Oligomenorrhoea [Recovered/Resolved]
  - Hot flush [Recovered/Resolved]
  - Adrenal insufficiency [Recovered/Resolved]
  - Hypothalamo-pituitary disorder [Recovered/Resolved]
